FAERS Safety Report 14412193 (Version 2)
Quarter: 2018Q1

REPORT INFORMATION
  Report Type: Report from Study
  Country: FR (occurrence: FR)
  Receive Date: 20180119
  Receipt Date: 20180130
  Transmission Date: 20180509
  Serious: Yes (Other)
  Sender: FDA-Public Use
  Company Number: FR-JNJFOC-20180117775

PATIENT
  Age: 39 Year
  Sex: Male
  Weight: 94 kg

DRUGS (4)
  1. COLCHICINE. [Concomitant]
     Active Substance: COLCHICINE
     Route: 065
     Dates: start: 20170720
  2. STELARA [Suspect]
     Active Substance: USTEKINUMAB
     Indication: PSORIASIS
     Route: 058
     Dates: start: 20160527, end: 201703
  3. PANTOPRAZOLE [Concomitant]
     Active Substance: PANTOPRAZOLE
     Route: 065
     Dates: start: 20170720
  4. ENBREL [Concomitant]
     Active Substance: ETANERCEPT
     Route: 058
     Dates: start: 20171121

REACTIONS (3)
  - Hypogammaglobulinaemia [Not Recovered/Not Resolved]
  - Product use issue [Unknown]
  - Off label use [Unknown]

NARRATIVE: CASE EVENT DATE: 20160527
